FAERS Safety Report 20990925 (Version 2)
Quarter: 2022Q3

REPORT INFORMATION
  Report Type: Report from Study
  Country: CA (occurrence: CA)
  Receive Date: 20220622
  Receipt Date: 20220705
  Transmission Date: 20221027
  Serious: Yes (Hospitalization, Other)
  Sender: FDA-Public Use
  Company Number: CA-ABBVIE-22K-028-4441404-00

PATIENT
  Age: 59 Year
  Sex: Female

DRUGS (1)
  1. HUMIRA [Suspect]
     Active Substance: ADALIMUMAB
     Indication: Crohn^s disease
     Route: 058
     Dates: start: 20130215

REACTIONS (17)
  - Thrombocytopenic purpura [Unknown]
  - Fall [Unknown]
  - Rib fracture [Unknown]
  - Intestinal haemorrhage [Unknown]
  - Weight decreased [Unknown]
  - Fatigue [Unknown]
  - Anal incontinence [Recovered/Resolved]
  - Vaginal haemorrhage [Recovered/Resolved]
  - Epistaxis [Unknown]
  - Menopause [Unknown]
  - Asthenia [Unknown]
  - Contusion [Not Recovered/Not Resolved]
  - Erythema [Unknown]
  - Pneumothorax [Unknown]
  - Chest pain [Not Recovered/Not Resolved]
  - Faeces discoloured [Unknown]
  - Diarrhoea [Unknown]

NARRATIVE: CASE EVENT DATE: 20220601
